FAERS Safety Report 9998915 (Version 2)
Quarter: 2014Q2

REPORT INFORMATION
  Report Type: Spontaneous
  Country: CA (occurrence: CA)
  Receive Date: 20140312
  Receipt Date: 20140401
  Transmission Date: 20141212
  Serious: No
  Sender: FDA-Public Use
  Company Number: CA-AMGEN-CANSP2014015869

PATIENT
  Age: 85 Year
  Sex: Female

DRUGS (5)
  1. PROLIA [Suspect]
     Indication: OSTEOPOROSIS
     Dosage: 60 MG, Q6MO
     Route: 058
     Dates: start: 20130812
  2. PREDNISONE [Concomitant]
     Dosage: 5 MG, UNK
     Route: 048
  3. MELOXICAM [Concomitant]
     Dosage: 7.5 MG, QD
     Route: 048
  4. RAMIPRIL HCT [Concomitant]
     Dosage: 10/12.5, QD
     Route: 048
  5. ADALAT XL [Concomitant]
     Dosage: 20 MG, QD
     Route: 048

REACTIONS (3)
  - Hypercalcaemia [Not Recovered/Not Resolved]
  - Bone disorder [Unknown]
  - Fatigue [Not Recovered/Not Resolved]
